FAERS Safety Report 5684099-0 (Version None)
Quarter: 2008Q1

REPORT INFORMATION
  Report Type: 
  Country: None (occurrence: None)
  Receive Date: 20080327
  Receipt Date: 20080327
  Transmission Date: 20080703
  Serious: Yes (Other)
  Sender: FDA-Public Use
  Company Number: None

PATIENT
  Age: 67 Year
  Sex: Female
  Weight: 58.9676 kg

DRUGS (2)
  1. ALLI [Suspect]
     Indication: FLATULENCE
     Dosage: ORAL 3X/DAILY
     Dates: start: 20080222, end: 20080303
  2. SYNTHROID [Concomitant]

REACTIONS (3)
  - DRUG INEFFECTIVE [None]
  - FLATULENCE [None]
  - PHARMACEUTICAL PRODUCT COMPLAINT [None]
